FAERS Safety Report 4405235-X (Version None)
Quarter: 2004Q3

REPORT INFORMATION
  Report Type: 
  Country: None (occurrence: None)
  Receive Date: 20040722
  Receipt Date: 20040722
  Transmission Date: 20050211
  Serious: Yes (Other)
  Sender: FDA-Public Use
  Company Number: None

PATIENT
  Age: 6 Year
  Sex: Male
  Weight: 34.0198 kg

DRUGS (2)
  1. TENEX [Suspect]
     Indication: BIPOLAR DISORDER
     Dosage: 1 QD ORAL
     Route: 048
     Dates: start: 20031109, end: 20040305
  2. RISPERDAL [Suspect]
     Indication: BIPOLAR DISORDER
     Dosage: 1 BID ORAL
     Route: 048
     Dates: start: 20030110, end: 20040305

REACTIONS (10)
  - ABDOMINAL PAIN UPPER [None]
  - CHEST PAIN [None]
  - DRUG INEFFECTIVE [None]
  - DYSPNOEA [None]
  - HEART RATE INCREASED [None]
  - JOINT INJURY [None]
  - MOOD SWINGS [None]
  - PAIN [None]
  - SALIVARY HYPERSECRETION [None]
  - TREATMENT NONCOMPLIANCE [None]
